FAERS Safety Report 12627131 (Version 1)
Quarter: 2016Q3

REPORT INFORMATION
  Report Type: Report from Study
  Country: GB (occurrence: GB)
  Receive Date: 20160805
  Receipt Date: 20160805
  Transmission Date: 20161109
  Serious: Yes (Other)
  Sender: FDA-Public Use
  Company Number: GB-SYNAGEVA BIOPHARMA CORP.-A201605458

PATIENT
  Age: 3 Month
  Sex: Female
  Weight: 5.75 kg

DRUGS (23)
  1. OMEPRAZOLE. [Concomitant]
     Active Substance: OMEPRAZOLE
     Indication: ANTACID THERAPY
     Dosage: 5 MG, QD
     Route: 048
     Dates: start: 20160603
  2. HEPARINIZED SALINE [Concomitant]
     Active Substance: HEPARIN SODIUM
     Indication: ANTICOAGULANT THERAPY
     Dosage: 200 IU, PRN
     Route: 042
     Dates: start: 20160612
  3. CHLORPHENIRAMINE MALEATE. [Concomitant]
     Active Substance: CHLORPHENIRAMINE MALEATE
     Indication: PROPHYLAXIS
     Dosage: 1.25 MG, PRN
     Route: 042
     Dates: start: 20160629, end: 20160629
  4. SEBELIPASE ALFA [Suspect]
     Active Substance: SEBELIPASE ALFA
     Indication: LYSOSOMAL ACID LIPASE DEFICIENCY
     Dosage: 1 MG/KG, QW
     Route: 042
     Dates: start: 20160519, end: 20160608
  5. ALFA-TOCOPHEROL ACETATE [Concomitant]
     Indication: VITAMIN E DEFICIENCY
     Dosage: 50 MG, QD
     Route: 048
     Dates: start: 20160527
  6. SYTRON [Concomitant]
     Indication: SERUM FERRITIN DECREASED
     Dosage: 2.5 ML, BID
     Route: 048
     Dates: start: 20160528
  7. CHLORPHENAMINE [Concomitant]
     Active Substance: CHLORPHENIRAMINE MALEATE
     Indication: ANAPHYLACTIC REACTION
     Dosage: 1.25 MG, SINGLE
     Route: 042
     Dates: start: 20160622, end: 20160622
  8. MEDIHONEY [Concomitant]
     Active Substance: HONEY
     Indication: MUSCULOSKELETAL PAIN
     Dosage: 1 GTT, QID
     Route: 061
     Dates: start: 20160526
  9. SODIUM CHLORIDE. [Concomitant]
     Active Substance: SODIUM CHLORIDE
     Indication: ANAPHYLACTIC REACTION
     Dosage: 25 ML, SINGLE
     Route: 042
     Dates: start: 20160629, end: 20160629
  10. ALFACALCIDOL [Concomitant]
     Active Substance: ALFACALCIDOL
     Indication: HYPOCALCAEMIA
     Dosage: 100 NG, QD
     Route: 048
     Dates: start: 20160527
  11. EPINEPHRINE. [Concomitant]
     Active Substance: EPINEPHRINE
     Indication: ANAPHYLACTIC REACTION
     Dosage: 150 ?G, SINGLE
     Route: 030
     Dates: start: 20160629, end: 20160629
  12. EPINEPHRINE. [Concomitant]
     Active Substance: EPINEPHRINE
     Dosage: 1 ML, SINGLE
     Route: 055
     Dates: start: 20160629, end: 20160629
  13. PARACETAMOL [Concomitant]
     Active Substance: ACETAMINOPHEN
     Indication: ANAPHYLACTIC REACTION
     Dosage: 60 MG, SINGLE
     Route: 042
     Dates: start: 20160629, end: 20160629
  14. PARACETAMOL [Concomitant]
     Active Substance: ACETAMINOPHEN
     Dosage: 60 MG, SINGLE
     Route: 048
     Dates: start: 20160622, end: 20160622
  15. RETINOL [Concomitant]
     Active Substance: RETINOL
     Indication: VITAMIN A DEFICIENCY
     Dosage: 5000 UT, QD
     Route: 048
     Dates: start: 20160527
  16. KAY CEE L [Concomitant]
     Indication: HYPOKALAEMIA
     Dosage: 5 MMOL, BID
     Route: 048
     Dates: start: 20160613
  17. HYDROCORTISONE. [Concomitant]
     Active Substance: HYDROCORTISONE
     Indication: ANAPHYLACTIC REACTION
     Dosage: 25 MG, SINGLE
     Route: 042
     Dates: start: 20160622, end: 20160622
  18. HYDROCORTISONE. [Concomitant]
     Active Substance: HYDROCORTISONE
     Indication: PROPHYLAXIS
     Dosage: 25 MG, PRN
     Route: 042
     Dates: start: 20160629, end: 20160629
  19. DEXTROSE W/SODIUM CHLORIDE [Concomitant]
     Active Substance: DEXTROSE\SODIUM CHLORIDE
     Indication: ANAPHYLACTIC REACTION
     Dosage: 20 ML, Q2H
     Route: 042
     Dates: start: 20160629
  20. SEBELIPASE ALFA [Suspect]
     Active Substance: SEBELIPASE ALFA
     Dosage: UNK
     Route: 042
     Dates: start: 20160714
  21. SEBELIPASE ALFA [Suspect]
     Active Substance: SEBELIPASE ALFA
     Dosage: 3 MG/KG, QW
     Route: 042
     Dates: start: 20160613
  22. NYSTATIN. [Concomitant]
     Active Substance: NYSTATIN
     Indication: MUSCULOSKELETAL PAIN
     Dosage: 1 CUBIC CM, QID
     Route: 061
     Dates: start: 20160613
  23. CHLORPHENIRAMINE MALEATE. [Concomitant]
     Active Substance: CHLORPHENIRAMINE MALEATE
     Dosage: 2.5 MG, SINGLE
     Route: 042
     Dates: start: 20160629, end: 20160629

REACTIONS (3)
  - Lip swelling [Recovered/Resolved]
  - Tongue discolouration [Recovered/Resolved]
  - Diarrhoea [Recovered/Resolved]

NARRATIVE: CASE EVENT DATE: 20160721
